FAERS Safety Report 20841152 (Version 1)
Quarter: 2022Q2

REPORT INFORMATION
  Report Type: Spontaneous
  Country: CO (occurrence: CO)
  Receive Date: 20220517
  Receipt Date: 20220517
  Transmission Date: 20220720
  Serious: Yes (Other)
  Sender: FDA-Public Use
  Company Number: CO-BIOMARINAP-CO-2022-143285

PATIENT
  Sex: Male
  Weight: 19 kg

DRUGS (6)
  1. VIMIZIM [Suspect]
     Active Substance: ELOSULFASE ALFA
     Indication: Mucopolysaccharidosis IV
     Dosage: UNK UNK, QW
     Route: 042
  2. BECLOMETHASONE [Concomitant]
     Active Substance: BECLOMETHASONE
     Indication: Product used for unknown indication
     Dosage: 50 MICROGRAM, QD
     Route: 045
  3. BECLOMETHASONE [Concomitant]
     Active Substance: BECLOMETHASONE
     Dosage: 250 MICROGRAM, QD
  4. OXYGEN [Concomitant]
     Active Substance: OXYGEN
     Indication: Product used for unknown indication
     Dosage: 0.5 LITER, QD
     Route: 045
  5. ALBUTEROL [Concomitant]
     Active Substance: ALBUTEROL
     Indication: Product used for unknown indication
     Dosage: 100 MICROGRAM, QD
  6. VITAMIN D [Concomitant]
     Active Substance: VITAMIN D NOS
     Indication: Product used for unknown indication
     Dosage: 6000 INTERNATIONAL UNIT, QW
     Route: 048

REACTIONS (1)
  - Obstructive sleep apnoea syndrome [Unknown]

NARRATIVE: CASE EVENT DATE: 20210601
